FAERS Safety Report 18792954 (Version 2)
Quarter: 2021Q3

REPORT INFORMATION
  Report Type: Report from Study
  Country: US (occurrence: US)
  Receive Date: 20210127
  Receipt Date: 20210906
  Transmission Date: 20211014
  Serious: Yes (Other)
  Sender: FDA-Public Use
  Company Number: US-UCBSA-2021001952

PATIENT
  Age: 74 Year
  Sex: Female

DRUGS (2)
  1. CERTOLIZUMAB PEGOL [Suspect]
     Active Substance: CERTOLIZUMAB PEGOL
     Dosage: 400 MILLIGRAM, MONTHLY (QM)
  2. CERTOLIZUMAB PEGOL [Suspect]
     Active Substance: CERTOLIZUMAB PEGOL
     Indication: PSORIATIC ARTHROPATHY
     Dosage: 400 MILLIGRAM, EV 2 WEEKS(QOW)
     Dates: start: 20201230

REACTIONS (6)
  - Finger deformity [Not Recovered/Not Resolved]
  - Pain [Not Recovered/Not Resolved]
  - Sinusitis [Not Recovered/Not Resolved]
  - Drug ineffective [Unknown]
  - Fatigue [Not Recovered/Not Resolved]
  - Peripheral swelling [Not Recovered/Not Resolved]

NARRATIVE: CASE EVENT DATE: 20201230
